FAERS Safety Report 5711041-6 (Version None)
Quarter: 2008Q2

REPORT INFORMATION
  Report Type: 
  Country: None (occurrence: None)
  Receive Date: 20080421
  Receipt Date: 20080410
  Transmission Date: 20081010
  Serious: Yes (Other)
  Sender: FDA-Public Use
  Company Number: GB-JNJFOC-20080403516

PATIENT
  Sex: Male

DRUGS (3)
  1. REMICADE [Suspect]
     Route: 042
  2. REMICADE [Suspect]
     Indication: CROHN'S DISEASE
     Route: 042
  3. BUDESONIDE [Concomitant]
     Indication: PREMEDICATION

REACTIONS (5)
  - DIZZINESS [None]
  - FLUSHING [None]
  - NAUSEA [None]
  - RENAL CELL CARCINOMA [None]
  - WHEEZING [None]
